FAERS Safety Report 9913983 (Version 1)
Quarter: 2014Q1

REPORT INFORMATION
  Report Type: Report from Study
  Country: CO (occurrence: CO)
  Receive Date: 20140220
  Receipt Date: 20140220
  Transmission Date: 20141002
  Serious: Yes (Hospitalization)
  Sender: FDA-Public Use
  Company Number: CO-ABBVIE-14P-036-1203696-00

PATIENT
  Age: 77 Year
  Sex: Male
  Weight: 73 kg

DRUGS (4)
  1. HUMIRA [Suspect]
     Indication: RHEUMATOID ARTHRITIS
     Route: 058
     Dates: start: 20131205, end: 20140103
  2. LEFLUNOMIDE [Concomitant]
     Indication: PRODUCT USED FOR UNKNOWN INDICATION
  3. METHOTREXATE [Concomitant]
     Indication: PRODUCT USED FOR UNKNOWN INDICATION
  4. PREDNISOLONE [Concomitant]
     Indication: PRODUCT USED FOR UNKNOWN INDICATION

REACTIONS (9)
  - Face oedema [Recovering/Resolving]
  - Abdominal distension [Recovering/Resolving]
  - Somnolence [Recovering/Resolving]
  - Respiratory distress [Recovering/Resolving]
  - Cough [Recovering/Resolving]
  - Bronchial obstruction [Recovering/Resolving]
  - Hypertensive crisis [Recovering/Resolving]
  - Pneumonia [Recovering/Resolving]
  - Lung disorder [Recovering/Resolving]
